FAERS Safety Report 10669813 (Version 3)
Quarter: 2015Q1

REPORT INFORMATION
  Report Type: Report from Study
  Country: DE (occurrence: DE)
  Receive Date: 20141222
  Receipt Date: 20150210
  Transmission Date: 20150720
  Serious: Yes (Hospitalization, Other)
  Sender: FDA-Public Use
  Company Number: DE-INCYTE CORPORATION-2014IN003946

PATIENT
  Sex: Female
  Weight: 84 kg

DRUGS (17)
  1. INCB018424 [Suspect]
     Active Substance: RUXOLITINIB
     Dosage: 2 DF, (5 MG), QD
     Route: 048
     Dates: start: 20141222, end: 20141224
  2. FOLSAN [Concomitant]
     Active Substance: FOLIC ACID
     Indication: ANAEMIA
     Dosage: 5 MG, QD
     Route: 065
     Dates: start: 20131201
  3. INCB018424 [Suspect]
     Active Substance: RUXOLITINIB
     Indication: MYELOFIBROSIS
     Dosage: 5 MG, BID (THREE DAYS PER WEEK)
     Route: 048
     Dates: start: 20141014, end: 20141108
  4. INCB018424 [Suspect]
     Active Substance: RUXOLITINIB
     Dosage: 2 DF,  (5 MG), QD
     Route: 048
     Dates: start: 20150107, end: 20150110
  5. URBASON//METHYLPREDNISOLONE [Concomitant]
     Indication: PERNICIOUS ANAEMIA
     Dosage: 40 MG, QD
     Route: 065
     Dates: start: 20131201
  6. FUROSEMIDE. [Concomitant]
     Active Substance: FUROSEMIDE
     Indication: RENAL FAILURE
     Dosage: 1000 MG, QD
     Route: 065
     Dates: start: 20131217
  7. VOMEX A [Concomitant]
     Active Substance: DIMENHYDRINATE
     Indication: NAUSEA
     Dosage: (AS NEEDED)
     Route: 065
     Dates: start: 20141001
  8. VOMEX A [Concomitant]
     Active Substance: DIMENHYDRINATE
     Indication: RENAL FAILURE
  9. VITAMIN B-COMPLEX VITAMIN C [Concomitant]
     Indication: DIALYSIS
  10. CLEXANE [Concomitant]
     Active Substance: ENOXAPARIN SODIUM
     Indication: THROMBOSIS PROPHYLAXIS
     Dosage: 40 MG, QD
     Route: 065
     Dates: start: 20131201
  11. PANTOPRAZOLE [Concomitant]
     Active Substance: PANTOPRAZOLE SODIUM
     Indication: GASTRITIS PROPHYLAXIS
     Dosage: 45 MG, QD
     Route: 065
     Dates: start: 20131201
  12. NOVAMIN                            /00013301/ [Concomitant]
     Active Substance: PROCHLORPERAZINE MALEATE
     Indication: PAIN
     Dosage: 2000 MG, QD
     Route: 065
     Dates: start: 20140624
  13. VITAMIN B-COMPLEX VITAMIN C [Concomitant]
     Indication: RENAL FAILURE
     Dosage: 1 DF, QD
     Route: 065
     Dates: start: 20141101
  14. CLEXANE [Concomitant]
     Active Substance: ENOXAPARIN SODIUM
     Indication: ATRIAL FIBRILLATION
     Dosage: 60 MG, QD
     Route: 065
     Dates: start: 20141126
  15. METOPROLOL [Concomitant]
     Active Substance: METOPROLOL
     Indication: HYPERTENSION
     Dosage: 200 MG, QD
     Route: 065
     Dates: start: 20051031
  16. ENALAPRIL [Concomitant]
     Active Substance: ENALAPRIL
     Indication: HYPERTENSION
     Dosage: 10 MG, QD
     Route: 065
     Dates: start: 20131201
  17. VITAMIN B-COMPLEX VITAMIN C [Concomitant]
     Indication: VITAMIN B12

REACTIONS (5)
  - Anxiety [Recovering/Resolving]
  - Hallucination, visual [Recovering/Resolving]
  - Atrial fibrillation [Recovering/Resolving]
  - Medical device complication [Recovered/Resolved]
  - Bronchopneumonia [Recovered/Resolved]

NARRATIVE: CASE EVENT DATE: 20141108
